FAERS Safety Report 5378850-7 (Version None)
Quarter: 2007Q3

REPORT INFORMATION
  Report Type: 
  Country: None (occurrence: None)
  Receive Date: 20070705
  Receipt Date: 20070626
  Transmission Date: 20080115
  Serious: Yes (Death, Other)
  Sender: FDA-Public Use
  Company Number: TN-ELI_LILLY_AND_COMPANY-TN200706006198

PATIENT
  Age: 67 Year
  Sex: Male
  Weight: 57 kg

DRUGS (5)
  1. GEMCITABINE HCL [Suspect]
     Indication: NON-SMALL CELL LUNG CANCER
     Dosage: 2000 MG, OTHER
     Route: 042
     Dates: start: 20070611
  2. CISPLATIN [Concomitant]
     Indication: NON-SMALL CELL LUNG CANCER
     Dosage: ON DAY 1
  3. ANZEMET [Concomitant]
  4. HEPARIN [Concomitant]
  5. SINTROM [Concomitant]

REACTIONS (3)
  - DEATH [None]
  - OEDEMA PERIPHERAL [None]
  - PHLEBITIS [None]
